FAERS Safety Report 6978714-9 (Version None)
Quarter: 2010Q3

REPORT INFORMATION
  Report Type: 
  Country: None (occurrence: None)
  Receive Date: 20100913
  Receipt Date: 20100902
  Transmission Date: 20110219
  Serious: Yes (Other)
  Sender: FDA-Public Use
  Company Number: B0670293A

PATIENT
  Sex: Female

DRUGS (13)
  1. SERETIDE [Suspect]
     Indication: ASTHMA
     Route: 055
     Dates: start: 20080101
  2. VENTOLIN [Suspect]
     Indication: ASTHMA
     Dosage: 100MCG AS REQUIRED
     Route: 055
     Dates: start: 20080101
  3. ELTROXIN [Suspect]
     Dosage: 100MCG PER DAY
     Route: 065
  4. UNSPECIFIED INHALER [Suspect]
     Indication: PRODUCT USED FOR UNKNOWN INDICATION
     Route: 055
  5. FLU JAB [Suspect]
     Indication: PRODUCT USED FOR UNKNOWN INDICATION
     Route: 065
  6. BRICANYL [Suspect]
     Indication: PRODUCT USED FOR UNKNOWN INDICATION
     Route: 065
  7. SINGULAIR [Concomitant]
     Route: 065
  8. VITAMIN TABLET [Concomitant]
  9. PREDNISOLONE [Concomitant]
  10. EXLAX [Concomitant]
  11. MANEVAC [Concomitant]
  12. CO Q10 ENZYME [Concomitant]
  13. VITAMIN E [Concomitant]

REACTIONS (20)
  - BLISTER [None]
  - CATARACT [None]
  - DYSPHAGIA [None]
  - DYSPNOEA [None]
  - HEADACHE [None]
  - HEART RATE INCREASED [None]
  - ILL-DEFINED DISORDER [None]
  - MALAISE [None]
  - MUSCLE SPASMS [None]
  - OROPHARYNGEAL PAIN [None]
  - PHARYNGEAL OEDEMA [None]
  - PRODUCTIVE COUGH [None]
  - PRURITUS [None]
  - SWELLING [None]
  - SWELLING FACE [None]
  - SWOLLEN TONGUE [None]
  - THROAT IRRITATION [None]
  - TONGUE PRURITUS [None]
  - TREMOR [None]
  - WEIGHT INCREASED [None]
